FAERS Safety Report 23231416 (Version 1)
Quarter: 2023Q4

REPORT INFORMATION
  Report Type: Spontaneous
  Country: US (occurrence: US)
  Receive Date: 20231127
  Receipt Date: 20231127
  Transmission Date: 20240110
  Serious: No
  Sender: FDA-Public Use
  Company Number: US-AVADEL CNS PHARMACEUTICALS, LLC-2023AVA00283

PATIENT
  Age: 33 Year
  Sex: Female

DRUGS (7)
  1. LUMRYZ [Suspect]
     Active Substance: SODIUM OXYBATE
     Indication: Narcolepsy
     Dosage: 9 G, 1X/DAY NIGHTLY
     Dates: start: 20231014, end: 20231014
  2. LUMRYZ [Suspect]
     Active Substance: SODIUM OXYBATE
     Indication: Cataplexy
  3. MELOXICAM [Concomitant]
     Active Substance: MELOXICAM
  4. DULOXETINE [Concomitant]
     Active Substance: DULOXETINE
  5. TOPIRAMATE [Concomitant]
     Active Substance: TOPIRAMATE
  6. ARIPIPRAZOLE [Concomitant]
     Active Substance: ARIPIPRAZOLE
  7. SUNOSI [Concomitant]
     Active Substance: SOLRIAMFETOL

REACTIONS (12)
  - Initial insomnia [Recovered/Resolved]
  - Vertigo [Recovering/Resolving]
  - Migraine [Recovering/Resolving]
  - Neck pain [Recovering/Resolving]
  - Erythema [Recovering/Resolving]
  - Skin warm [Recovering/Resolving]
  - Hypoaesthesia [Recovering/Resolving]
  - Drug hypersensitivity [Recovering/Resolving]
  - Feeling drunk [Recovering/Resolving]
  - Nausea [Recovering/Resolving]
  - Vomiting [Recovering/Resolving]
  - Panic reaction [Recovering/Resolving]

NARRATIVE: CASE EVENT DATE: 20231014
